FAERS Safety Report 4861003-6 (Version None)
Quarter: 2005Q4

REPORT INFORMATION
  Report Type: 
  Country: None (occurrence: None)
  Receive Date: 20051220
  Receipt Date: 20050210
  Transmission Date: 20060501
  Serious: No
  Sender: FDA-Public Use
  Company Number: US-GLAXOSMITHKLINE-A0544954A

PATIENT
  Age: 45 Year
  Sex: Female

DRUGS (4)
  1. TAGAMET [Suspect]
     Dosage: 800MG TWICE PER DAY
     Route: 048
     Dates: start: 20050101, end: 20050208
  2. DILANTIN [Concomitant]
  3. TEGRETOL [Concomitant]
  4. INDERAL [Concomitant]

REACTIONS (1)
  - APHTHOUS STOMATITIS [None]
